FAERS Safety Report 16032525 (Version 1)
Quarter: 2019Q1

REPORT INFORMATION
  Report Type: Spontaneous
  Country: BR (occurrence: BR)
  Receive Date: 20190304
  Receipt Date: 20190304
  Transmission Date: 20190418
  Serious: Yes (Hospitalization, Other)
  Sender: FDA-Public Use
  Company Number: BR-ABBVIE-19K-020-2684574-00

PATIENT
  Sex: Female
  Weight: 75 kg

DRUGS (1)
  1. HUMIRA [Suspect]
     Active Substance: ADALIMUMAB
     Indication: RHEUMATOID ARTHRITIS
     Route: 058
     Dates: end: 20190130

REACTIONS (18)
  - Gingival abscess [Not Recovered/Not Resolved]
  - Pruritus [Recovered/Resolved]
  - Food allergy [Not Recovered/Not Resolved]
  - Oral infection [Not Recovered/Not Resolved]
  - Pruritus [Recovering/Resolving]
  - Oral infection [Recovered/Resolved]
  - Pruritus generalised [Recovered/Resolved]
  - Pruritus generalised [Recovered/Resolved]
  - Erythema [Recovered/Resolved]
  - Eye pruritus [Not Recovered/Not Resolved]
  - Toothache [Recovering/Resolving]
  - Skin swelling [Recovered/Resolved]
  - Pruritus generalised [Recovering/Resolving]
  - Pruritus [Recovering/Resolving]
  - Sinusitis [Recovered/Resolved]
  - Gingival abscess [Recovered/Resolved]
  - Pneumonia [Recovered/Resolved]
  - Pharyngitis [Recovered/Resolved]

NARRATIVE: CASE EVENT DATE: 2018
